FAERS Safety Report 21555875 (Version 1)
Quarter: 2022Q4

REPORT INFORMATION
  Report Type: Spontaneous
  Country: FR (occurrence: FR)
  Receive Date: 20221104
  Receipt Date: 20221104
  Transmission Date: 20230113
  Serious: Yes (Life-Threatening)
  Sender: FDA-Public Use
  Company Number: None

PATIENT
  Age: 42 Year
  Sex: Female
  Weight: 67 kg

DRUGS (1)
  1. VERAPAMIL HYDROCHLORIDE [Suspect]
     Active Substance: VERAPAMIL HYDROCHLORIDE
     Indication: Suicide attempt
     Dosage: INGESTION 80 TABLETS OF VERAPAMIL 120 MG, UNIT DOSE : 9.6 GRAM, DURATION : 1 DAYS
     Route: 065
     Dates: start: 20220515, end: 20220515

REACTIONS (2)
  - Cardiogenic shock [Recovered/Resolved]
  - Poisoning deliberate [Recovered/Resolved]

NARRATIVE: CASE EVENT DATE: 20220515
